FAERS Safety Report 9781032 (Version 5)
Quarter: 2015Q1

REPORT INFORMATION
  Report Type: Spontaneous
  Country: DE (occurrence: DE)
  Receive Date: 20131224
  Receipt Date: 20150105
  Transmission Date: 20150721
  Serious: Yes (Other)
  Sender: FDA-Public Use
  Company Number: PHHY2013DE150110

PATIENT
  Age: 69 Year
  Sex: Male
  Weight: 86 kg

DRUGS (26)
  1. EXJADE [Suspect]
     Active Substance: DEFERASIROX
     Indication: MYELODYSPLASTIC SYNDROME
     Dosage: 750 MG, QD
     Route: 048
     Dates: start: 2012
  2. EXJADE [Suspect]
     Active Substance: DEFERASIROX
     Dosage: 1500 MG, QD
     Route: 048
     Dates: start: 20131201
  3. METOPROLOL [Concomitant]
     Active Substance: METOPROLOL
     Indication: HYPERTENSION
     Dosage: 1 DF, IN MORNING
     Dates: start: 2000
  4. ALLOPURINOL. [Concomitant]
     Active Substance: ALLOPURINOL
     Indication: PRODUCT USED FOR UNKNOWN INDICATION
     Dosage: 1 DF, IN THE MORNING
     Route: 065
  5. BEPANTHEN [Concomitant]
     Active Substance: DEXPANTHENOL
     Indication: PRODUCT USED FOR UNKNOWN INDICATION
     Dosage: UNK, SEVERAL TIMES DAILY
     Route: 065
  6. LOSARTAN [Concomitant]
     Active Substance: LOSARTAN
     Indication: PRODUCT USED FOR UNKNOWN INDICATION
     Dosage: 12.5 MG, QD
     Route: 048
     Dates: start: 2010
  7. JAKAFI [Suspect]
     Active Substance: RUXOLITINIB
     Dosage: 5 MG, BID  (1 TABLET IN MORNING AND 1 TABLET IN EVENING)
     Route: 048
     Dates: start: 201310
  8. MARCUMAR [Suspect]
     Active Substance: PHENPROCOUMON
     Indication: PULMONARY EMBOLISM
     Dosage: 3 MG,ACCORDING TO INR, TARGET INR: 1,5-2,0, (1/2-3/4 OF TABLET)
     Route: 048
     Dates: start: 2010
  9. HYLO-COMOD [Concomitant]
     Indication: PRODUCT USED FOR UNKNOWN INDICATION
     Dosage: UNK UKN, A FEW TIMES A DAY
     Route: 065
  10. EXJADE [Suspect]
     Active Substance: DEFERASIROX
     Dosage: 500 MG, BID
     Route: 048
  11. EUPHORBIUM COMP [Concomitant]
     Indication: PRODUCT USED FOR UNKNOWN INDICATION
     Dosage: A FEW TIMES A DAY
     Route: 065
  12. ERYTHROCYTES [Concomitant]
     Active Substance: HUMAN RED BLOOD CELL
     Indication: PRODUCT USED FOR UNKNOWN INDICATION
     Dosage: 2 DF, EVERY 8 TO 10 DAYS
     Route: 065
  13. LOSARTAN CT [Concomitant]
     Indication: HYPERTENSION
     Dosage: 50 MG, 01 TABLET
     Route: 065
  14. HCT [Concomitant]
     Active Substance: HYDROCHLOROTHIAZIDE
     Indication: PRODUCT USED FOR UNKNOWN INDICATION
     Dosage: 50 MG, QD
     Route: 048
     Dates: start: 2010
  15. JAKAFI [Suspect]
     Active Substance: RUXOLITINIB
     Indication: MYELOFIBROSIS
     Dosage: 5 MG, QD
     Route: 048
     Dates: start: 20131015
  16. EXJADE [Suspect]
     Active Substance: DEFERASIROX
     Dosage: 500 MG, BID (500 MG IN THE MORNING AND 500 MG IN THE EVENING)
     Route: 048
     Dates: start: 2013
  17. MARCUMAR [Suspect]
     Active Substance: PHENPROCOUMON
     Indication: ARRHYTHMIA
     Dosage: 1 TABLET PER DAY
     Route: 048
     Dates: start: 2004
  18. MARCUMAR [Suspect]
     Active Substance: PHENPROCOUMON
     Indication: DEEP VEIN THROMBOSIS
     Dosage: 1 TABLET PER DAY
     Route: 048
     Dates: start: 2006
  19. METOPROLOL [Concomitant]
     Active Substance: METOPROLOL
     Dosage: 47.5 MG (1 TABLET)
  20. VALSACOR [Concomitant]
     Active Substance: VALSARTAN
     Indication: HYPERTENSION
     Dosage: 0.5 DF, IN EVENING
     Dates: start: 2005
  21. HCT BETA [Concomitant]
     Active Substance: HYDROCHLOROTHIAZIDE
     Indication: HYPERTENSION
     Dosage: 0.5 DF, IF NECESSARY
     Route: 065
     Dates: start: 2002
  22. HCT BETA [Concomitant]
     Active Substance: HYDROCHLOROTHIAZIDE
     Dosage: 12.5 MG, 1 TABLET
     Route: 065
  23. EXJADE [Suspect]
     Active Substance: DEFERASIROX
     Dosage: 250 MG, BID
     Route: 048
     Dates: start: 201308
  24. EXJADE [Suspect]
     Active Substance: DEFERASIROX
     Dosage: 2000 MG, DAILY (1000 MG IN THE MORNING AND 1000 MG IN THE EVENING)
     Route: 048
  25. ALLOPURINOL. [Concomitant]
     Active Substance: ALLOPURINOL
     Dosage: 0.5 DF, UNK
     Route: 065
  26. NEUPRO [Concomitant]
     Active Substance: ROTIGOTINE
     Indication: PRODUCT USED FOR UNKNOWN INDICATION
     Dosage: 2 MG, PER 24 HOURS IN THE EVENING

REACTIONS (8)
  - Blood creatinine increased [Unknown]
  - Dyspnoea [Unknown]
  - Restless legs syndrome [Not Recovered/Not Resolved]
  - Pericardial effusion [Recovered/Resolved]
  - White blood cell count decreased [Unknown]
  - Pleural effusion [Recovered/Resolved]
  - Weight increased [Unknown]
  - Platelet count decreased [Unknown]

NARRATIVE: CASE EVENT DATE: 2013
